FAERS Safety Report 17471339 (Version 2)
Quarter: 2022Q1

REPORT INFORMATION
  Report Type: Other
  Country: US (occurrence: None)
  Receive Date: 20200227
  Receipt Date: 20220325
  Transmission Date: 20220424
  Serious: No
  Sender: FDA-Public Use
  Company Number: US-ROCHE-2556528

PATIENT
  Sex: Female

DRUGS (20)
  1. CELLCEPT [Suspect]
     Active Substance: MYCOPHENOLATE MOFETIL
     Indication: Uveitis
     Dosage: ^TAKE 3 TABLETS QAM...^
     Route: 048
     Dates: start: 20200217
  2. CELLCEPT [Suspect]
     Active Substance: MYCOPHENOLATE MOFETIL
     Dosage: ^AND 2 TABLETS QHS^
     Route: 048
  3. CELLCEPT [Suspect]
     Active Substance: MYCOPHENOLATE MOFETIL
     Dosage: TAKE 2 TABLETS IN MORNING AND 2 TABLETS IN EVENING TOTAL OF 2000MG
     Route: 048
  4. AVASTIN [Suspect]
     Active Substance: BEVACIZUMAB
     Indication: Cystoid macular oedema
     Route: 042
  5. TACROLIMUS [Concomitant]
     Active Substance: TACROLIMUS
  6. VALTREX [Concomitant]
     Active Substance: VALACYCLOVIR HYDROCHLORIDE
  7. KENALOG [Concomitant]
     Active Substance: TRIAMCINOLONE ACETONIDE
  8. TIMOPTIC [Concomitant]
     Active Substance: TIMOLOL MALEATE
  9. METOPROLOL TARTRATE [Concomitant]
     Active Substance: METOPROLOL TARTRATE
  10. LISINOPRIL [Concomitant]
     Active Substance: LISINOPRIL
  11. XALATAN [Concomitant]
     Active Substance: LATANOPROST
  12. ESTRACE [Concomitant]
     Active Substance: ESTRADIOL
  13. CYCLOBENZAPRINE HYDROCHLORIDE [Concomitant]
     Active Substance: CYCLOBENZAPRINE HYDROCHLORIDE
  14. ASPIRIN [Concomitant]
     Active Substance: ASPIRIN
  15. ASCORBIC ACID [Concomitant]
     Active Substance: ASCORBIC ACID
  16. NORVASC [Concomitant]
     Active Substance: AMLODIPINE BESYLATE
  17. FOSAMAX [Concomitant]
     Active Substance: ALENDRONATE SODIUM
  18. PREDNISONE [Concomitant]
     Active Substance: PREDNISONE
  19. LATANOPROST [Concomitant]
     Active Substance: LATANOPROST
  20. DICLOFENAC [Concomitant]
     Active Substance: DICLOFENAC

REACTIONS (2)
  - Off label use [Unknown]
  - No adverse event [Unknown]
